FAERS Safety Report 5159211-2 (Version None)
Quarter: 2006Q4

REPORT INFORMATION
  Report Type: 
  Country: None (occurrence: None)
  Receive Date: 20061120
  Receipt Date: 20061103
  Transmission Date: 20070319
  Serious: Yes (Death)
  Sender: FDA-Public Use
  Company Number: 2006VX002246

PATIENT
  Age: 69 Year
  Sex: Male

DRUGS (11)
  1. MESTINON [Suspect]
     Indication: MUSCULAR WEAKNESS
     Dosage: 60 MG; BID; PO
     Route: 048
     Dates: start: 20060615, end: 20061010
  2. IMURAN [Suspect]
     Dosage: 50 MG; TID; PO
     Route: 048
     Dates: start: 20060615, end: 20061010
  3. EPREX [Suspect]
     Dosage: 10 KIU; TIW; SC
     Route: 058
     Dates: end: 20061010
  4. DALTEPARIN SODIUM [Suspect]
     Dosage: 5 KIU; QD; SC
     Route: 058
  5. MEDROL [Concomitant]
  6. LANTUS [Concomitant]
  7. LASIX [Concomitant]
  8. TARDYFERON [Concomitant]
  9. DIFFU K [Concomitant]
  10. LOXEN [Concomitant]
  11. HYPERIUM [Concomitant]

REACTIONS (1)
  - CARDIAC ARREST [None]
